FAERS Safety Report 9503635 (Version 1)
Quarter: 2013Q3

REPORT INFORMATION
  Report Type: Spontaneous
  Country: US (occurrence: None)
  Receive Date: 20130905
  Receipt Date: 20130905
  Transmission Date: 20140515
  Serious: Yes (Hospitalization)
  Sender: FDA-Public Use
  Company Number: None

PATIENT
  Age: 46 Year
  Sex: Female
  Weight: 71.67 kg

DRUGS (1)
  1. MIRENA [Suspect]

REACTIONS (3)
  - Device dislocation [None]
  - Device dislocation [None]
  - Embedded device [None]
